FAERS Safety Report 5145434-5 (Version None)
Quarter: 2006Q4

REPORT INFORMATION
  Report Type: 
  Country: None (occurrence: None)
  Receive Date: 20061101
  Receipt Date: 20061024
  Transmission Date: 20070319
  Serious: Yes (Other)
  Sender: FDA-Public Use
  Company Number: B0443745A

PATIENT
  Age: 27 Year
  Sex: Female

DRUGS (4)
  1. ZINACEF [Suspect]
  2. METRONIDAZOLE (METRONIDAZOLE) (GENERIC) [Suspect]
  3. EMGEL [Suspect]
  4. BETAMETHASONE (BETAMETHASONE) (GENERIC) [Suspect]

REACTIONS (3)
  - ABORTION SPONTANEOUS [None]
  - DRUG EXPOSURE DURING PREGNANCY [None]
  - PREMATURE RUPTURE OF MEMBRANES [None]
